FAERS Safety Report 9788548 (Version 1)
Quarter: 2013Q4

REPORT INFORMATION
  Report Type: Spontaneous
  Country: DE (occurrence: DE)
  Receive Date: 20131230
  Receipt Date: 20131230
  Transmission Date: 20140711
  Serious: Yes (Other)
  Sender: FDA-Public Use
  Company Number: DE-PFIZER INC-2013371611

PATIENT
  Age: 38 Year
  Sex: Female

DRUGS (2)
  1. VENLAFAXINE HCL [Suspect]
     Dosage: 300 MG, AS NEEDED
     Dates: start: 2009
  2. LAMOTRIGINE [Interacting]
     Dosage: 200 MG
     Dates: start: 2009

REACTIONS (8)
  - Drug interaction [Recovered/Resolved]
  - Fatigue [Recovered/Resolved]
  - Depression [Recovered/Resolved]
  - Disturbance in attention [Recovered/Resolved]
  - Memory impairment [Recovered/Resolved]
  - Rapid eye movements sleep abnormal [Recovered/Resolved]
  - Poor quality sleep [Recovered/Resolved]
  - Sleep talking [Recovered/Resolved]
